FAERS Safety Report 26104785 (Version 1)
Quarter: 2025Q4

REPORT INFORMATION
  Report Type: Spontaneous
  Country: LK (occurrence: LK)
  Receive Date: 20251130
  Receipt Date: 20251130
  Transmission Date: 20260119
  Serious: No
  Sender: ALKEM
  Company Number: LK-ALKEM LABORATORIES LIMITED-LK-ALKEM-2025-11604

PATIENT
  Age: 53 Year
  Sex: Female

DRUGS (6)
  1. MYCOPHENOLATE MOFETIL [Suspect]
     Active Substance: MYCOPHENOLATE MOFETIL
     Indication: Cold type haemolytic anaemia
     Dosage: 250 MILLIGRAM, BID
     Route: 065
     Dates: start: 202408
  2. METHYLPREDNISOLONE [Suspect]
     Active Substance: METHYLPREDNISOLONE
     Indication: Cold type haemolytic anaemia
     Dosage: 1 GRAM
     Route: 042
     Dates: start: 202408
  3. PREDNISOLONE [Suspect]
     Active Substance: PREDNISOLONE
     Indication: Cold type haemolytic anaemia
     Dosage: 40 MILLIGRAM
     Route: 048
     Dates: start: 202408
  4. PREDNISOLONE [Suspect]
     Active Substance: PREDNISOLONE
     Dosage: 50 MILLIGRAM, BID (DAY 1,5)
     Route: 065
  5. RITUXIMAB [Suspect]
     Active Substance: RITUXIMAB
     Indication: Cold type haemolytic anaemia
     Dosage: 500 MILLIGRAM, ONCE WEEKLY (FOUR DOSES)
     Route: 042
     Dates: start: 202409
  6. RITUXIMAB [Suspect]
     Active Substance: RITUXIMAB
     Dosage: 600 MILLIGRAM DAY 1
     Route: 042
     Dates: start: 202411

REACTIONS (1)
  - Therapy partial responder [Unknown]
